FAERS Safety Report 13742359 (Version 1)
Quarter: 2017Q3

REPORT INFORMATION
  Report Type: Spontaneous
  Country: CA (occurrence: CA)
  Receive Date: 20170711
  Receipt Date: 20170711
  Transmission Date: 20171127
  Serious: Yes (Disabling, Other)
  Sender: FDA-Public Use
  Company Number: CA-BAYER-2017-125997

PATIENT
  Age: 35 Year
  Sex: Female

DRUGS (1)
  1. MIRENA [Suspect]
     Active Substance: LEVONORGESTREL
     Dosage: 20 MG/24HR, CONT
     Route: 015

REACTIONS (16)
  - Fatigue [None]
  - General physical health deterioration [None]
  - Abdominal pain upper [None]
  - Loss of libido [None]
  - Confusional state [None]
  - Condition aggravated [None]
  - Dizziness [None]
  - Pelvic pain [None]
  - Arthralgia [None]
  - Night sweats [None]
  - Mental disorder [None]
  - Malaise [None]
  - Ovarian cyst [None]
  - Abdominal pain [None]
  - Impaired quality of life [None]
  - Nausea [None]

NARRATIVE: CASE EVENT DATE: 201609
